FAERS Safety Report 16633979 (Version 2)
Quarter: 2019Q4

REPORT INFORMATION
  Report Type: Spontaneous
  Country: US (occurrence: US)
  Receive Date: 20190725
  Receipt Date: 20191126
  Transmission Date: 20200122
  Serious: Yes (Hospitalization, Other)
  Sender: FDA-Public Use
  Company Number: US-ASTRAZENECA-2019SF05070

PATIENT
  Age: 39 Year
  Sex: Female
  Weight: 65.8 kg

DRUGS (51)
  1. CYCLOVENZAPRINE [Concomitant]
     Indication: MUSCLE RELAXANT THERAPY
     Dosage: PRESENT
     Dates: start: 2014
  2. SUMATRIPTAN. [Concomitant]
     Active Substance: SUMATRIPTAN
  3. HYDROCODONE /ACETAMINOFEN [Concomitant]
  4. GEMFIBROZIL. [Concomitant]
     Active Substance: GEMFIBROZIL
  5. LEXAPRO [Concomitant]
     Active Substance: ESCITALOPRAM OXALATE
  6. TERCONAZOLE. [Concomitant]
     Active Substance: TERCONAZOLE
  7. CEPHALEXIN. [Concomitant]
     Active Substance: CEPHALEXIN
  8. CARAFATE [Concomitant]
     Active Substance: SUCRALFATE
  9. SULFAMETH/TRIMETHOPRIM [Concomitant]
     Active Substance: SULFAMETHOXAZOLE\TRIMETHOPRIM
  10. CIPRODEX [Concomitant]
     Active Substance: CIPROFLOXACIN HYDROCHLORIDE\DEXAMETHASONE
  11. SENNA [Concomitant]
     Active Substance: SENNA LEAF\SENNOSIDES\SENNOSIDES A AND B
  12. NAPROXEN. [Concomitant]
     Active Substance: NAPROXEN
  13. NEXIUM [Suspect]
     Active Substance: ESOMEPRAZOLE MAGNESIUM
     Indication: GASTROOESOPHAGEAL REFLUX DISEASE
     Route: 048
     Dates: start: 201901
  14. OMEPRAZOLE OTC [Suspect]
     Active Substance: OMEPRAZOLE
     Indication: GASTROOESOPHAGEAL REFLUX DISEASE
     Route: 048
     Dates: start: 201909
  15. ATORVASTATIN [Concomitant]
     Active Substance: ATORVASTATIN
     Indication: HYPERCHOLESTEROLAEMIA
     Dosage: PRESENT
     Dates: start: 2012
  16. CREON [Concomitant]
     Active Substance: PANCRELIPASE AMYLASE\PANCRELIPASE LIPASE\PANCRELIPASE PROTEASE
     Indication: PANCREATIC DISORDER
     Dosage: PRESENT
     Dates: start: 2017
  17. ACETAMINOPHEN. [Concomitant]
     Active Substance: ACETAMINOPHEN
  18. DICYCLOMINE [Concomitant]
     Active Substance: DICYCLOMINE HYDROCHLORIDE
  19. DOCUSATE CALCIUM. [Concomitant]
     Active Substance: DOCUSATE CALCIUM
  20. PEPTO-BISMOL [Concomitant]
     Active Substance: BISMUTH SUBSALICYLATE
     Dosage: PRESENT
     Dates: start: 2015
  21. NEXIUM [Suspect]
     Active Substance: ESOMEPRAZOLE MAGNESIUM
     Indication: GASTROOESOPHAGEAL REFLUX DISEASE
     Route: 048
     Dates: start: 2017
  22. NITROFURANTOIN. [Concomitant]
     Active Substance: NITROFURANTOIN
  23. TRAMADOL. [Concomitant]
     Active Substance: TRAMADOL
  24. ZOLPIDEM [Concomitant]
     Active Substance: ZOLPIDEM TARTRATE
  25. VOLTAREN [Concomitant]
     Active Substance: DICLOFENAC SODIUM
  26. MILK OF MAGNESIA [Concomitant]
     Active Substance: MAGNESIUM HYDROXIDE
     Dosage: PRESENT
     Dates: start: 2015
  27. ALPRAZOLAM. [Concomitant]
     Active Substance: ALPRAZOLAM
  28. TUMS [Concomitant]
     Active Substance: CALCIUM CARBONATE
     Dosage: PRESENT
     Dates: start: 2015
  29. NEXIUM [Suspect]
     Active Substance: ESOMEPRAZOLE MAGNESIUM
     Indication: GASTROOESOPHAGEAL REFLUX DISEASE
     Route: 048
     Dates: start: 201701, end: 201708
  30. IBUPROFEN. [Concomitant]
     Active Substance: IBUPROFEN
     Indication: PAIN
     Dosage: PRESENT
     Dates: start: 2012
  31. IBUPROFEN. [Concomitant]
     Active Substance: IBUPROFEN
     Indication: PAIN
     Dates: start: 2012, end: 2017
  32. PROMETHAZINE [Concomitant]
     Active Substance: PROMETHAZINE HYDROCHLORIDE
  33. CIPROFLOXACIN. [Concomitant]
     Active Substance: CIPROFLOXACIN
  34. METRONIDAZOLE. [Concomitant]
     Active Substance: METRONIDAZOLE
  35. FAMOTIDINE. [Concomitant]
     Active Substance: FAMOTIDINE
  36. ABILIFY [Concomitant]
     Active Substance: ARIPIPRAZOLE
  37. AMOXICILLIN. [Concomitant]
     Active Substance: AMOXICILLIN
  38. CLINDAMYCIN. [Concomitant]
     Active Substance: CLINDAMYCIN
  39. LOPERAMIDE [Concomitant]
     Active Substance: LOPERAMIDE
  40. GAVISCON [Concomitant]
     Active Substance: ALUMINUM HYDROXIDE\MAGNESIUM CARBONATE
     Dosage: PRESENT
     Dates: start: 2015
  41. SERTRALINE [Concomitant]
     Active Substance: SERTRALINE HYDROCHLORIDE
  42. ONDANSETRON [Concomitant]
     Active Substance: ONDANSETRON
  43. MELOXICAM. [Concomitant]
     Active Substance: MELOXICAM
  44. DIAZEPAM. [Concomitant]
     Active Substance: DIAZEPAM
  45. MYLANTA [Concomitant]
     Active Substance: ALUMINUM HYDROXIDE\DIMETHICONE\MAGNESIUM HYDROXIDE
     Dosage: PRESENT
     Dates: start: 2015
  46. NEXIUM [Suspect]
     Active Substance: ESOMEPRAZOLE MAGNESIUM
     Indication: GASTROOESOPHAGEAL REFLUX DISEASE
     Dosage: DELAYED RELEASE
     Route: 048
     Dates: start: 20190109, end: 20190208
  47. AMITRIPTYLINE [Concomitant]
     Active Substance: AMITRIPTYLINE
     Indication: DEPRESSION
     Dosage: PRESENT
     Dates: start: 2017
  48. CYMBALTA [Concomitant]
     Active Substance: DULOXETINE HYDROCHLORIDE
  49. BISACODYL. [Concomitant]
     Active Substance: BISACODYL
  50. LIDOCAINE. [Concomitant]
     Active Substance: LIDOCAINE
  51. FAMOTIDINE. [Concomitant]
     Active Substance: FAMOTIDINE
     Dates: start: 201308, end: 201310

REACTIONS (2)
  - Renal failure [Not Recovered/Not Resolved]
  - Chronic kidney disease [Unknown]

NARRATIVE: CASE EVENT DATE: 2017
